FAERS Safety Report 16849336 (Version 2)
Quarter: 2019Q4

REPORT INFORMATION
  Report Type: Spontaneous
  Country: AT (occurrence: AT)
  Receive Date: 20190925
  Receipt Date: 20191008
  Transmission Date: 20200122
  Serious: Yes (Other)
  Sender: FDA-Public Use
  Company Number: AT-UCBSA-2019040736

PATIENT
  Age: 47 Year
  Sex: Female
  Weight: 54 kg

DRUGS (17)
  1. KEPPRA [Suspect]
     Active Substance: LEVETIRACETAM
     Dosage: 2000MG
     Dates: start: 200804, end: 200808
  2. DEPAKINE [VALPROIC ACID] [Concomitant]
     Active Substance: VALPROIC ACID
  3. KEPPRA [Suspect]
     Active Substance: LEVETIRACETAM
     Dosage: 2000MG
     Dates: start: 2002, end: 2004
  4. KEPPRA [Suspect]
     Active Substance: LEVETIRACETAM
     Dosage: 1000MG
     Dates: start: 2004, end: 2008
  5. KEPPRA [Suspect]
     Active Substance: LEVETIRACETAM
     Dosage: 1000MG
     Dates: start: 200911, end: 201401
  6. LEVETIRACETAM ACTAVIS [Suspect]
     Active Substance: LEVETIRACETAM
     Indication: EPILEPSY
     Dosage: 1000MG
     Dates: start: 201401, end: 201706
  7. LEVETIRACETAM ACTAVIS [Suspect]
     Active Substance: LEVETIRACETAM
     Dosage: 500MG
     Dates: start: 201706, end: 201802
  8. MAXI KALZ [Concomitant]
     Indication: CERVICAL SPINAL STENOSIS
  9. MAXI KALZ [Concomitant]
     Indication: OSTEOCHONDROSIS
  10. MAGNESIUM [Concomitant]
     Active Substance: MAGNESIUM
     Indication: OSTEOCHONDROSIS
     Dosage: UNK
     Dates: start: 201808
  11. MAXI KALZ [Concomitant]
     Indication: OSTEOPENIA
  12. MAGNESIUM [Concomitant]
     Active Substance: MAGNESIUM
     Indication: CERVICAL SPINAL STENOSIS
  13. KEPPRA [Suspect]
     Active Substance: LEVETIRACETAM
     Dosage: 1500MG
     Dates: start: 200808, end: 200911
  14. MAGNESIUM [Concomitant]
     Active Substance: MAGNESIUM
     Indication: OSTEOPENIA
  15. COLECALCIFEROL-CHOLESTERIN [Concomitant]
  16. KEPPRA [Suspect]
     Active Substance: LEVETIRACETAM
     Indication: EPILEPSY
     Dosage: 2000MG
     Dates: start: 2000, end: 2002
  17. CIPRALEX [Concomitant]
     Active Substance: ESCITALOPRAM OXALATE
     Dosage: UNK
     Dates: start: 2010, end: 2014

REACTIONS (3)
  - Osteochondrosis [Recovered/Resolved]
  - Cervical spinal stenosis [Not Recovered/Not Resolved]
  - Osteopenia [Not Recovered/Not Resolved]

NARRATIVE: CASE EVENT DATE: 2008
